FAERS Safety Report 25470514 (Version 1)
Quarter: 2025Q2

REPORT INFORMATION
  Report Type: Spontaneous
  Country: GR (occurrence: GR)
  Receive Date: 20250624
  Receipt Date: 20250624
  Transmission Date: 20250717
  Serious: Yes (Other)
  Sender: SOLA PHARMACEUTICALS
  Company Number: GR-SOLA PHARMACEUTICALS-20250600021

PATIENT

DRUGS (1)
  1. TERIFLUNOMIDE [Suspect]
     Active Substance: TERIFLUNOMIDE
     Indication: Relapsing-remitting multiple sclerosis
     Route: 065

REACTIONS (1)
  - Lacunar infarction [Recovered/Resolved]
